FAERS Safety Report 6190289-3 (Version None)
Quarter: 2009Q2

REPORT INFORMATION
  Report Type: 
  Country: None (occurrence: None)
  Receive Date: 20090514
  Receipt Date: 20090504
  Transmission Date: 20091009
  Serious: Yes (Hospitalization, Congenital Anomaly)
  Sender: FDA-Public Use
  Company Number: A0746206A

PATIENT
  Sex: Male
  Weight: 3.1 kg

DRUGS (5)
  1. PAXIL [Suspect]
     Indication: DEPRESSION
     Dates: start: 20040101, end: 20050101
  2. ALBUTEROL [Concomitant]
  3. NEXIUM [Concomitant]
  4. FLINTSTONE VITAMINS [Concomitant]
  5. SEPTRA DS [Concomitant]
     Dates: start: 20050318

REACTIONS (2)
  - DRUG EXPOSURE DURING PREGNANCY [None]
  - FALLOT'S TETRALOGY [None]
